FAERS Safety Report 13698734 (Version 1)
Quarter: 2017Q2

REPORT INFORMATION
  Report Type: Spontaneous
  Country: AR (occurrence: AR)
  Receive Date: 20170628
  Receipt Date: 20170628
  Transmission Date: 20170830
  Serious: Yes (Other)
  Sender: FDA-Public Use
  Company Number: AR-PFIZER INC-2017280916

PATIENT
  Age: 72 Year
  Sex: Male

DRUGS (2)
  1. SUTENT [Suspect]
     Active Substance: SUNITINIB MALATE
     Dosage: 12.5 MG, CYCLIC (14 DAYS ON AND 7 DAYS OFF)
     Dates: start: 20131101
  2. SUTENT [Suspect]
     Active Substance: SUNITINIB MALATE
     Indication: METASTATIC RENAL CELL CARCINOMA
     Dosage: 25 MG, CYCLIC (14 DAYS ON AND 7 DAYS OFF)
     Dates: start: 20131101

REACTIONS (3)
  - Vein rupture [Recovering/Resolving]
  - Swelling [Recovering/Resolving]
  - Contusion [Recovering/Resolving]

NARRATIVE: CASE EVENT DATE: 20170623
